FAERS Safety Report 25655441 (Version 5)
Quarter: 2025Q3

REPORT INFORMATION
  Report Type: Spontaneous
  Country: US (occurrence: US)
  Receive Date: 20250807
  Receipt Date: 20250912
  Transmission Date: 20251020
  Serious: No
  Sender: PFIZER
  Company Number: US-PFIZER INC-202500157949

PATIENT
  Age: 60 Year
  Sex: Female

DRUGS (8)
  1. CIBINQO [Suspect]
     Active Substance: ABROCITINIB
     Indication: Dermatitis atopic
     Dosage: 100 MG, 1X/DAY
     Route: 048
  2. CIBINQO [Suspect]
     Active Substance: ABROCITINIB
     Indication: Dermatitis
     Dosage: 100 MG, ONCE EVERY OTHER DAY
  3. CIBINQO [Suspect]
     Active Substance: ABROCITINIB
     Indication: Erythema
     Dosage: 100 MG, DAILY
  4. CIBINQO [Suspect]
     Active Substance: ABROCITINIB
     Indication: Eczema
  5. CIBINQO [Suspect]
     Active Substance: ABROCITINIB
     Indication: Xerosis
  6. CIBINQO [Suspect]
     Active Substance: ABROCITINIB
     Indication: Seborrhoeic dermatitis
  7. CIBINQO [Suspect]
     Active Substance: ABROCITINIB
     Indication: Psoriasis
  8. CIBINQO [Suspect]
     Active Substance: ABROCITINIB
     Indication: Dermatitis contact

REACTIONS (3)
  - Fatigue [Recovering/Resolving]
  - Sleep disorder due to a general medical condition [Unknown]
  - Off label use [Unknown]
